FAERS Safety Report 23326540 (Version 1)
Quarter: 2023Q4

REPORT INFORMATION
  Report Type: Spontaneous
  Country: US (occurrence: US)
  Receive Date: 20231221
  Receipt Date: 20231221
  Transmission Date: 20240110
  Serious: No
  Sender: FDA-Public Use
  Company Number: US-JAZZ PHARMACEUTICALS-2023-US-012451

PATIENT
  Age: 67 Year
  Sex: Female
  Weight: 142.4 kg

DRUGS (2)
  1. ZEPZELCA [Suspect]
     Active Substance: LURBINECTEDIN
     Indication: Small cell lung cancer
     Dosage: 5.5 MILLIGRAM
  2. ZEPZELCA [Suspect]
     Active Substance: LURBINECTEDIN
     Dosage: 4 MILLIGRAM
     Route: 042
     Dates: start: 20230427

REACTIONS (2)
  - Asthenia [Unknown]
  - Product preparation error [Unknown]
